FAERS Safety Report 8242174-0 (Version None)
Quarter: 2012Q1

REPORT INFORMATION
  Report Type: 
  Country: None (occurrence: None)
  Receive Date: 20120314
  Receipt Date: 20101104
  Transmission Date: 20120608
  Serious: No
  Sender: FDA-Public Use
  Company Number: PHHY2010US75063

PATIENT
  Age: 35 Year
  Sex: Female

DRUGS (1)
  1. FANAPT [Suspect]
     Indication: SCHIZOPHRENIA
     Dosage: 1 MG, BID, ORAL
     Route: 048

REACTIONS (4)
  - NERVOUSNESS [None]
  - FEELING ABNORMAL [None]
  - ANXIETY [None]
  - PALPITATIONS [None]
